FAERS Safety Report 20324118 (Version 2)
Quarter: 2022Q1

REPORT INFORMATION
  Report Type: Report from Study
  Country: CA (occurrence: CA)
  Receive Date: 20220111
  Receipt Date: 20220112
  Transmission Date: 20220423
  Serious: Yes (Death, Hospitalization, Other)
  Sender: FDA-Public Use
  Company Number: CA-PFIZER INC-202200019506

PATIENT
  Age: 61 Year
  Sex: Female
  Weight: 65 kg

DRUGS (4)
  1. AXITINIB [Suspect]
     Active Substance: AXITINIB
     Dosage: 2 MG, 2 EVERY 1 DAYS
     Route: 065
  2. PEMBROLIZUMAB [Suspect]
     Active Substance: PEMBROLIZUMAB
     Indication: Renal cell carcinoma
     Dosage: 200 MG, 1 EVERY 3 WEEKS
     Route: 042
  3. PEMBROLIZUMAB [Suspect]
     Active Substance: PEMBROLIZUMAB
     Dosage: 200 MG, 1 EVERY 3 WEEKS
     Route: 042
  4. PEMBROLIZUMAB [Suspect]
     Active Substance: PEMBROLIZUMAB
     Dosage: 200 MG, 1 EVERY 3 WEEKS
     Route: 042

REACTIONS (33)
  - Death [Fatal]
  - Asthenia [Fatal]
  - Blood albumin decreased [Fatal]
  - Blood chloride decreased [Fatal]
  - Blood lactate dehydrogenase increased [Fatal]
  - Blood pressure abnormal [Fatal]
  - Blood pressure decreased [Fatal]
  - Blood urea increased [Fatal]
  - Decreased appetite [Fatal]
  - Dysphonia [Fatal]
  - Dyspnoea [Fatal]
  - Fatigue [Fatal]
  - Haematemesis [Fatal]
  - Haematocrit decreased [Fatal]
  - Haemoglobin decreased [Fatal]
  - Hypotension [Fatal]
  - Malaise [Fatal]
  - Neoplasm progression [Fatal]
  - Mean cell haemoglobin decreased [Fatal]
  - Nausea [Fatal]
  - Pain [Fatal]
  - Platelet count increased [Fatal]
  - Platelet morphology abnormal [Fatal]
  - Pulse abnormal [Fatal]
  - Red blood cell count decreased [Fatal]
  - Red cell distribution width increased [Fatal]
  - Somnolence [Fatal]
  - Tachycardia [Fatal]
  - Thrombosis [Fatal]
  - Tumour ulceration [Fatal]
  - Weight decreased [Fatal]
  - Product dose omission issue [Unknown]
  - Inappropriate schedule of product administration [Unknown]
